FAERS Safety Report 23130247 (Version 1)
Quarter: 2023Q4

REPORT INFORMATION
  Report Type: Spontaneous
  Country: US (occurrence: US)
  Receive Date: 20231031
  Receipt Date: 20231031
  Transmission Date: 20240110
  Serious: No
  Sender: FDA-Public Use
  Company Number: US-FreseniusKabi-FK202317043

PATIENT
  Sex: Female

DRUGS (1)
  1. NESACAINE MPF [Suspect]
     Active Substance: CHLOROPROCAINE HYDROCHLORIDE
     Indication: Caesarean section
     Dosage: CHLOROPROCAINE HCL INJECTION) 3%?600MG/20ML (30MG/ML)?DOSAGE USED WAS 45MG TO 60 MG ?FREQUENCY: ONCE
     Route: 008

REACTIONS (2)
  - Drug ineffective [Unknown]
  - Exposure during pregnancy [Unknown]
